FAERS Safety Report 5068780-2 (Version None)
Quarter: 2006Q3

REPORT INFORMATION
  Report Type: 
  Country: None (occurrence: None)
  Receive Date: 20060802
  Receipt Date: 20060329
  Transmission Date: 20061208
  Serious: No
  Sender: FDA-Public Use
  Company Number: US-BRISTOL-MYERS SQUIBB COMPANY-13330717

PATIENT
  Age: 63 Year
  Sex: Female
  Weight: 75 kg

DRUGS (8)
  1. COUMADIN [Suspect]
     Indication: ATRIAL FIBRILLATION
     Dosage: 1/2 TABLET (2.5 MG) ONCE DAILY FOR TWO DAYS ALTERNATING WITH 1 TABLET (5 MG) ONCE DAILY FOR ONE DAY
     Dates: start: 20051001
  2. ALLEGRA [Concomitant]
  3. ACIPHEX [Concomitant]
  4. ATENOLOL [Concomitant]
  5. LEVOXYL [Concomitant]
  6. COZAAR [Concomitant]
  7. MAXZIDE [Concomitant]
  8. VITAMIN [Concomitant]

REACTIONS (2)
  - ALOPECIA [None]
  - INTERNATIONAL NORMALISED RATIO DECREASED [None]
